FAERS Safety Report 9179353 (Version 1)
Quarter: 2012Q4

REPORT INFORMATION
  Report Type: 
  Country: US (occurrence: US)
  Receive Date: 20121029
  Receipt Date: 20121029
  Transmission Date: 20130627
  Serious: No
  Sender: FDA-Public Use
  Company Number: US-AMGEN-USASP2012052522

PATIENT
  Age: 55 Year
  Sex: Female

DRUGS (7)
  1. ENBREL [Suspect]
     Indication: PRODUCT USED FOR UNKNOWN INDICATION
     Dosage: 50 mg, qwk
     Route: 058
  2. BENADRYL                           /00000402/ [Concomitant]
     Dosage: 25 mg, UNK
  3. MELOXICAM [Concomitant]
     Dosage: 15 mg, UNK
  4. CYCLOBENZAPRINE [Concomitant]
  5. ASPIRIN LOW [Concomitant]
     Dosage: 81 mg, UNK
  6. LORATADIN [Concomitant]
     Dosage: 10 ml, UNK
  7. FOLIC ACID [Concomitant]

REACTIONS (1)
  - Sinusitis [Unknown]
